FAERS Safety Report 18702978 (Version 2)
Quarter: 2021Q1

REPORT INFORMATION
  Report Type: Spontaneous
  Country: GB (occurrence: GB)
  Receive Date: 20210105
  Receipt Date: 20210125
  Transmission Date: 20210419
  Serious: Yes (Other)
  Sender: FDA-Public Use
  Company Number: GB-TEVA-2020-GB-1865781

PATIENT
  Sex: Female

DRUGS (1)
  1. SIMVASTATIN. [Suspect]
     Active Substance: SIMVASTATIN
     Dosage: 10 MG
     Route: 065

REACTIONS (6)
  - Eye pruritus [Unknown]
  - Blindness [Unknown]
  - Constipation [Unknown]
  - Eye pain [Unknown]
  - Eye swelling [Unknown]
  - Hiatus hernia [Unknown]
